FAERS Safety Report 24286740 (Version 2)
Quarter: 2024Q4

REPORT INFORMATION
  Report Type: Spontaneous
  Country: IN (occurrence: IN)
  Receive Date: 20240905
  Receipt Date: 20241025
  Transmission Date: 20250115
  Serious: Yes (Other)
  Sender: PFIZER
  Company Number: IN-PFIZER INC-PV202400114800

PATIENT
  Age: 34 Year
  Sex: Female

DRUGS (5)
  1. INOTUZUMAB OZOGAMICIN [Suspect]
     Active Substance: INOTUZUMAB OZOGAMICIN
     Indication: Acute lymphocytic leukaemia refractory
     Dosage: 1 MG
     Route: 042
     Dates: start: 20240313
  2. INOTUZUMAB OZOGAMICIN [Suspect]
     Active Substance: INOTUZUMAB OZOGAMICIN
     Dosage: 1 MG, WEEKLY (ONCE A WEEK, IN 100 ML NS OVER 1 HOUR IV FOR 2 WEEKS)
     Route: 042
     Dates: start: 20240828
  3. METHOTREXATE [Concomitant]
     Active Substance: METHOTREXATE
     Dosage: UNK (HIGH DOSE; POST SECOND HIGH DOSE, COMPLETED FOUR DOSES OF HIGH DOSE)
  4. METHOTREXATE [Concomitant]
     Active Substance: METHOTREXATE
     Dosage: UNK
     Route: 042
  5. CALCIUM CARBONATE\CHOLECALCIFEROL [Concomitant]
     Active Substance: CALCIUM CARBONATE\CHOLECALCIFEROL
     Dosage: UNK, 1X/DAY (ONCE DAILY AFTER FOOD FOR 2 MONTHS)
     Route: 048
     Dates: start: 20240823

REACTIONS (4)
  - Hydronephrosis [Unknown]
  - Broad ligament leiomyoma [Unknown]
  - Liver disorder [Unknown]
  - Uterine disorder [Unknown]

NARRATIVE: CASE EVENT DATE: 20240101
